FAERS Safety Report 6505573-0 (Version None)
Quarter: 2009Q4

REPORT INFORMATION
  Report Type: 
  Country: None (occurrence: None)
  Receive Date: 20091217
  Receipt Date: 20091217
  Transmission Date: 20100525
  Serious: No
  Sender: FDA-Public Use
  Company Number: None

PATIENT
  Age: 81 Year
  Sex: Male
  Weight: 79.3795 kg

DRUGS (1)
  1. TORSEMIDE [Suspect]
     Indication: OEDEMA
     Dosage: 20MG PILL 1/DAY ORAL
     Route: 048
     Dates: start: 20091114

REACTIONS (1)
  - DEHYDRATION [None]
